FAERS Safety Report 5036621-5 (Version None)
Quarter: 2006Q2

REPORT INFORMATION
  Report Type: 
  Country: None (occurrence: None)
  Receive Date: 20060531
  Receipt Date: 20060411
  Transmission Date: 20061013
  Serious: No
  Sender: FDA-Public Use
  Company Number: PHEH2006US04801

PATIENT
  Age: 66 Year
  Sex: Female

DRUGS (2)
  1. EXJADE [Suspect]
     Indication: BLOOD IRON INCREASED
     Dosage: 1000 MG, QD, ORAL
     Route: 048
     Dates: start: 20060301, end: 20060322
  2. GLUCOTROL [Suspect]
     Indication: DIABETES MELLITUS NON-INSULIN-DEPENDENT
     Dates: end: 20060401

REACTIONS (5)
  - BLOOD GLUCOSE INCREASED [None]
  - DIARRHOEA [None]
  - HEADACHE [None]
  - NAUSEA [None]
  - RASH PRURITIC [None]
